FAERS Safety Report 13804043 (Version 1)
Quarter: 2017Q3

REPORT INFORMATION
  Report Type: Spontaneous
  Country: JP (occurrence: JP)
  Receive Date: 20170728
  Receipt Date: 20170728
  Transmission Date: 20171127
  Serious: Yes (Other)
  Sender: FDA-Public Use
  Company Number: JP-AMGEN-JPNSP2017113920

PATIENT
  Age: 6 Decade
  Sex: Female

DRUGS (2)
  1. ENBREL [Suspect]
     Active Substance: ETANERCEPT
     Indication: PRODUCT USED FOR UNKNOWN INDICATION
     Dosage: 25 MG, QWK
     Route: 065
  2. SALAZOSULFAPYRIDINE [Suspect]
     Active Substance: SULFASALAZINE

REACTIONS (2)
  - Cell marker increased [Unknown]
  - Interstitial lung disease [Unknown]
